FAERS Safety Report 17184171 (Version 1)
Quarter: 2019Q4

REPORT INFORMATION
  Report Type: Spontaneous
  Country: US (occurrence: US)
  Receive Date: 20191219
  Receipt Date: 20191219
  Transmission Date: 20200122
  Serious: Yes (Hospitalization)
  Sender: FDA-Public Use
  Company Number: None

PATIENT
  Age: 22 Year
  Sex: Male

DRUGS (9)
  1. BACTRIM TAB 400-80MG [Concomitant]
     Dates: start: 20190503
  2. CIMZIA [Suspect]
     Active Substance: CERTOLIZUMAB PEGOL
     Indication: CROHN^S DISEASE
     Dosage: ?          OTHER FREQUENCY:BI-WEEKLY;?
     Route: 058
     Dates: start: 20190507
  3. PREDNISONE TAB 10MG [Concomitant]
     Active Substance: PREDNISONE
     Dates: start: 20190503
  4. AZATHIOPRINE INJ 100MG [Concomitant]
     Dates: start: 20190503
  5. ALLOPURINOL TAB 300MG [Concomitant]
  6. ALLOPURINOL TAB 300MG [Concomitant]
     Dates: start: 20121121
  7. AZATHIOPRINE TAB 50MG [Concomitant]
     Active Substance: AZATHIOPRINE
     Dates: start: 20181224
  8. HUMIRA PEN KIT CHRONS [Concomitant]
     Dates: start: 20121121
  9. HUMIRA PEN KIT 40MG/0.8 [Concomitant]
     Dates: start: 20121121

REACTIONS (1)
  - Anal fistula [None]
